FAERS Safety Report 16671763 (Version 2)
Quarter: 2019Q3

REPORT INFORMATION
  Report Type: Spontaneous
  Country: NL (occurrence: NL)
  Receive Date: 20190806
  Receipt Date: 20190905
  Transmission Date: 20191004
  Serious: Yes (Other)
  Sender: FDA-Public Use
  Company Number: NL-AMGEN-NLDSP2019122289

PATIENT
  Sex: Male

DRUGS (4)
  1. SALBUTAMOL [Concomitant]
     Active Substance: ALBUTEROL
     Dosage: 100 UG/DO
  2. PROLIA [Suspect]
     Active Substance: DENOSUMAB
     Indication: OSTEOPOROSIS
     Dosage: 60 MILLIGRAM PER MILLILITRE, Q6MO
     Route: 058
     Dates: start: 20190107
  3. COLECALCIFEROL [Concomitant]
     Active Substance: CHOLECALCIFEROL
  4. HYDROXOCOBALAMINE [Concomitant]
     Active Substance: HYDROXOCOBALAMIN

REACTIONS (1)
  - Epilepsy [Recovered/Resolved]
